FAERS Safety Report 9057804 (Version 1)
Quarter: 2013Q1

REPORT INFORMATION
  Report Type: Spontaneous
  Country: US (occurrence: None)
  Receive Date: 20130204
  Receipt Date: 20130204
  Transmission Date: 20140127
  Serious: No
  Sender: FDA-Public Use
  Company Number: None

PATIENT
  Age: 60 Year
  Sex: Female
  Weight: 53.98 kg

DRUGS (2)
  1. BIMATOPROST [Suspect]
     Indication: GLAUCOMA
     Dosage: 1 DROP EACH EYE Q NOC TOP
     Dates: start: 20110720, end: 20130201
  2. TIMOLOL MALEATE [Suspect]
     Dosage: 1 DROP RIGHT EYE Q MORNING TOP
     Dates: start: 20121201, end: 20130201

REACTIONS (1)
  - Periorbital disorder [None]
